FAERS Safety Report 4390148-2 (Version None)
Quarter: 2004Q3

REPORT INFORMATION
  Report Type: 
  Country: None (occurrence: None)
  Receive Date: 20040706
  Receipt Date: 20040624
  Transmission Date: 20050211
  Serious: Yes (Disabling)
  Sender: FDA-Public Use
  Company Number: US-GLAXOSMITHKLINE-A0515869A

PATIENT
  Age: 32 Year
  Sex: Female
  Weight: 46.8 kg

DRUGS (2)
  1. PAXIL [Suspect]
     Indication: POST-TRAUMATIC STRESS DISORDER
     Dosage: 20MG PER DAY
     Route: 048
     Dates: start: 19980101, end: 20000101
  2. TRAZODONE HCL [Concomitant]

REACTIONS (13)
  - ANOREXIA [None]
  - ANXIETY [None]
  - BIPOLAR DISORDER [None]
  - BIPOLAR I DISORDER [None]
  - BULIMIA NERVOSA [None]
  - DEPRESSION [None]
  - FIBROMYALGIA [None]
  - INSOMNIA [None]
  - OBSESSIVE-COMPULSIVE DISORDER [None]
  - PERFORMANCE STATUS DECREASED [None]
  - PREMENSTRUAL SYNDROME [None]
  - SUICIDAL IDEATION [None]
  - TOURETTE'S DISORDER [None]
